FAERS Safety Report 8223883-6 (Version None)
Quarter: 2012Q1

REPORT INFORMATION
  Report Type: 
  Country: None (occurrence: None)
  Receive Date: 20120321
  Receipt Date: 20120316
  Transmission Date: 20120608
  Serious: Yes (Hospitalization, Other)
  Sender: FDA-Public Use
  Company Number: US-PFIZER INC-2011232412

PATIENT
  Sex: Female

DRUGS (1)
  1. SUTENT [Suspect]
     Indication: METASTATIC RENAL CELL CARCINOMA
     Dosage: 50 MG, 1X/DAY X 28 DAYS EVERY 42 DAYS
     Dates: start: 20091201, end: 20111031

REACTIONS (17)
  - SKIN DISORDER [None]
  - GASTROOESOPHAGEAL REFLUX DISEASE [None]
  - ALOPECIA [None]
  - DEPRESSION [None]
  - ANXIETY [None]
  - HYPERTENSION [None]
  - ERUCTATION [None]
  - BLISTER [None]
  - URINARY TRACT INFECTION [None]
  - DISEASE PROGRESSION [None]
  - RENAL CELL CARCINOMA [None]
  - THYROID DISORDER [None]
  - ABDOMINAL PAIN UPPER [None]
  - DYSGEUSIA [None]
  - DEHYDRATION [None]
  - FATIGUE [None]
  - FLATULENCE [None]
